FAERS Safety Report 6554248-0 (Version None)
Quarter: 2010Q1

REPORT INFORMATION
  Report Type: 
  Country: None (occurrence: None)
  Receive Date: 20100127
  Receipt Date: 20100114
  Transmission Date: 20100710
  Serious: Yes (Hospitalization)
  Sender: FDA-Public Use
  Company Number: RO-WATSON-2010-00626

PATIENT
  Age: 23 Year
  Sex: Female

DRUGS (2)
  1. AFEDITAB CR [Suspect]
     Indication: SUICIDE ATTEMPT
     Dosage: 3000 MG, SINGLE
     Route: 048
  2. ACETAMINOPHEN [Suspect]
     Indication: SUICIDE ATTEMPT
     Dosage: UNK

REACTIONS (3)
  - CIRCULATORY COLLAPSE [None]
  - PANCREATITIS ACUTE [None]
  - POISONING [None]
